FAERS Safety Report 25995985 (Version 1)
Quarter: 2025Q4

REPORT INFORMATION
  Report Type: Spontaneous
  Country: CN (occurrence: CN)
  Receive Date: 20251104
  Receipt Date: 20251104
  Transmission Date: 20260118
  Serious: Yes (Other)
  Sender: PFIZER
  Company Number: CN-PFIZER INC-PV202500128812

PATIENT
  Age: 30 Year
  Sex: Female
  Weight: 62 kg

DRUGS (2)
  1. PACLITAXEL [Suspect]
     Active Substance: PACLITAXEL
     Indication: Endometrial cancer stage IV
     Dosage: 30 MG, 1X/DAY
     Route: 041
     Dates: start: 20250926, end: 20250926
  2. PARAPLATIN [Concomitant]
     Active Substance: CARBOPLATIN
     Indication: Endometrial cancer stage IV
     Dosage: 462 MG
     Dates: start: 20250926, end: 20250926

REACTIONS (2)
  - Palpitations [Recovering/Resolving]
  - Off label use [Unknown]

NARRATIVE: CASE EVENT DATE: 20250926
